FAERS Safety Report 22338136 (Version 1)
Quarter: 2023Q2

REPORT INFORMATION
  Report Type: Spontaneous
  Country: US (occurrence: US)
  Receive Date: 20230518
  Receipt Date: 20230518
  Transmission Date: 20230722
  Serious: No
  Sender: FDA-Public Use
  Company Number: US-SA-SAC20230517001397

PATIENT
  Sex: Female
  Weight: 73.4 kg

DRUGS (14)
  1. DUPIXENT [Suspect]
     Active Substance: DUPILUMAB
     Indication: Asthma
     Dosage: 300 MG, QOW
     Route: 058
     Dates: start: 202106
  2. TRELEGY ELLIPTA [Concomitant]
     Active Substance: FLUTICASONE FUROATE\UMECLIDINIUM BROMIDE\VILANTEROL TRIFENATATE
  3. BREO ELLIPTA [Concomitant]
     Active Substance: FLUTICASONE FUROATE\VILANTEROL TRIFENATATE
  4. TYLENOL [Concomitant]
     Active Substance: ACETAMINOPHEN
  5. ADVIL [Concomitant]
     Active Substance: IBUPROFEN
  6. FLONASE ALLERGY RELIEF [Concomitant]
     Active Substance: FLUTICASONE PROPIONATE
  7. FLAXSEED [Concomitant]
     Active Substance: FLAX SEED
  8. VITAMIN D3 [Concomitant]
     Active Substance: CHOLECALCIFEROL
  9. VITAMINS [Concomitant]
     Active Substance: VITAMINS
  10. VITAMIN C [Concomitant]
     Active Substance: ASCORBIC ACID
  11. ALBUTEROL SULFATE [Concomitant]
     Active Substance: ALBUTEROL SULFATE
  12. ESTROVEN COMPLETE MULTI SYMPTOM MENOPAUSE RELIEF [Concomitant]
  13. MULLEIN [Concomitant]
  14. PROBIOTICS NOS [Concomitant]
     Active Substance: PROBIOTICS NOS

REACTIONS (1)
  - Productive cough [Unknown]
